FAERS Safety Report 8302476-6 (Version None)
Quarter: 2012Q2

REPORT INFORMATION
  Report Type: 
  Country: None (occurrence: None)
  Receive Date: 20120420
  Receipt Date: 20120413
  Transmission Date: 20120825
  Serious: Yes (Other)
  Sender: FDA-Public Use
  Company Number: CA-GENZYME-CAMP-1002147

PATIENT
  Sex: Male
  Weight: 88.5 kg

DRUGS (7)
  1. ALEMTUZUMAB [Suspect]
     Indication: MULTIPLE SCLEROSIS
     Dosage: 12 MG, QD
     Route: 042
     Dates: start: 20110628, end: 20110630
  2. METHYLPREDNISOLONE [Concomitant]
     Dosage: 1000 MG, QD
     Route: 042
     Dates: start: 20100309, end: 20100311
  3. ALTACE [Concomitant]
     Indication: HYPERTENSION
     Dosage: 10 MG, QD
     Route: 048
  4. METHYLPREDNISOLONE [Concomitant]
     Indication: MULTIPLE SCLEROSIS
     Dosage: 1000 MG, QD
     Route: 042
     Dates: start: 20090309, end: 20090313
  5. METHYLPREDNISOLONE [Concomitant]
     Dosage: 1000 MG, QD
     Route: 042
     Dates: start: 20110628, end: 20110630
  6. ALEMTUZUMAB [Suspect]
     Dosage: 12 MG, QD
     Route: 042
     Dates: start: 20090309, end: 20090313
  7. ALEMTUZUMAB [Suspect]
     Dosage: 12 MG, QD
     Route: 042
     Dates: start: 20100309, end: 20100311

REACTIONS (1)
  - ATRIAL FIBRILLATION [None]
